FAERS Safety Report 4385427-9 (Version None)
Quarter: 2004Q2

REPORT INFORMATION
  Report Type: 
  Country: None (occurrence: None)
  Receive Date: 20040625
  Receipt Date: 20040625
  Transmission Date: 20050107
  Serious: Yes (Hospitalization)
  Sender: FDA-Public Use
  Company Number: None

PATIENT

DRUGS (1)
  1. PHENYTOIN [Suspect]
     Dosage: 300 MG PO BID
     Route: 048

REACTIONS (5)
  - DRUG TOXICITY [None]
  - FALL [None]
  - GAIT DISTURBANCE [None]
  - SKIN LACERATION [None]
  - SPEECH DISORDER [None]
